FAERS Safety Report 4742541-3 (Version None)
Quarter: 2005Q3

REPORT INFORMATION
  Report Type: 
  Country: None (occurrence: None)
  Receive Date: 20050811
  Receipt Date: 20050801
  Transmission Date: 20060218
  Serious: Yes (Other)
  Sender: FDA-Public Use
  Company Number: GB-GILEAD-2005-0008586

PATIENT
  Age: 40 Year
  Sex: Male

DRUGS (4)
  1. VIREAD [Suspect]
     Dates: end: 20050801
  2. 3TC [Concomitant]
  3. ATAZANAVIR [Concomitant]
  4. RITONAVIR [Concomitant]

REACTIONS (3)
  - BLOOD CREATININE INCREASED [None]
  - PROGRESSIVE MULTIFOCAL LEUKOENCEPHALOPATHY [None]
  - PROTEINURIA [None]
